FAERS Safety Report 5884550-7 (Version None)
Quarter: 2008Q3

REPORT INFORMATION
  Report Type: 
  Country: None (occurrence: None)
  Receive Date: 20080916
  Receipt Date: 20080910
  Transmission Date: 20090109
  Serious: Yes (Disabling, Other)
  Sender: FDA-Public Use
  Company Number: PHRM2007FR01009

PATIENT
  Age: 69 Year
  Sex: Female
  Weight: 87 kg

DRUGS (4)
  1. AREDIA [Suspect]
     Indication: MULTIPLE MYELOMA
     Dosage: UNK, UNK
     Route: 042
     Dates: start: 20020201, end: 20030515
  2. ZOMETA [Suspect]
     Indication: MULTIPLE MYELOMA
     Dosage: UNK, UNK
     Route: 042
     Dates: start: 20030516, end: 20050101
  3. ALKERAN [Concomitant]
     Indication: MULTIPLE MYELOMA
     Dates: start: 20020101
  4. CORTANCYL [Concomitant]
     Indication: MULTIPLE MYELOMA

REACTIONS (4)
  - OSTEONECROSIS [None]
  - PAIN [None]
  - PATHOLOGICAL FRACTURE [None]
  - PSEUDARTHROSIS [None]
